FAERS Safety Report 22300088 (Version 1)
Quarter: 2023Q2

REPORT INFORMATION
  Report Type: Spontaneous
  Country: US (occurrence: None)
  Receive Date: 20230508
  Receipt Date: 20230508
  Transmission Date: 20230721
  Serious: Yes (Other)
  Sender: FDA-Public Use
  Company Number: None

PATIENT
  Age: 90 Year
  Sex: Female

DRUGS (1)
  1. VELTASSA [Suspect]
     Active Substance: PATIROMER
     Dosage: FREQUENCY : DAILY;?
     Route: 048
     Dates: start: 202009

REACTIONS (3)
  - Headache [None]
  - Blood potassium abnormal [None]
  - Therapy interrupted [None]

NARRATIVE: CASE EVENT DATE: 20230507
